FAERS Safety Report 6786515-X (Version None)
Quarter: 2010Q2

REPORT INFORMATION
  Report Type: 
  Country: None (occurrence: None)
  Receive Date: 20100623
  Receipt Date: 20100604
  Transmission Date: 20101027
  Serious: Yes (Other)
  Sender: FDA-Public Use
  Company Number: D0067359A

PATIENT
  Sex: Male

DRUGS (2)
  1. REQUIP [Suspect]
     Dosage: 8MG IN THE MORNING
     Route: 048
     Dates: start: 20100101
  2. CARBIDOPA AND LEVODOPA [Suspect]
     Route: 065
     Dates: start: 20090101

REACTIONS (7)
  - ABDOMINAL DISCOMFORT [None]
  - BLOOD PRESSURE DECREASED [None]
  - CARDIOVASCULAR DISORDER [None]
  - CIRCULATORY COLLAPSE [None]
  - FALL [None]
  - HYPERHIDROSIS [None]
  - NAUSEA [None]
